FAERS Safety Report 6132119-1 (Version None)
Quarter: 2009Q1

REPORT INFORMATION
  Report Type: 
  Country: None (occurrence: None)
  Receive Date: 20090325
  Receipt Date: 20090320
  Transmission Date: 20090719
  Serious: Yes (Hospitalization, Other)
  Sender: FDA-Public Use
  Company Number: A0774917A

PATIENT
  Age: 46 Year
  Sex: Female
  Weight: 75 kg

DRUGS (2)
  1. SERETIDE [Suspect]
     Indication: ASTHMA
     Dosage: 1PUFF TWICE PER DAY
     Dates: start: 20090217
  2. TRAMADOL HCL [Concomitant]
     Dates: start: 20081117, end: 20090312

REACTIONS (1)
  - INFARCTION [None]
